FAERS Safety Report 8898625 (Version 1)
Quarter: 2012Q4

REPORT INFORMATION
  Report Type: 
  Country: SE (occurrence: SE)
  Receive Date: 20121109
  Receipt Date: 20121109
  Transmission Date: 20130627
  Serious: Yes (Hospitalization, Other)
  Sender: FDA-Public Use
  Company Number: SE-PFIZER INC-2012276563

PATIENT
  Age: 61 Year
  Sex: Female
  Weight: 95 kg

DRUGS (7)
  1. GENOTROPIN [Suspect]
     Indication: GROWTH HORMONE DEFICIENCY
     Dosage: 0.1 mg, 1x/day, 7 injections/week
     Route: 058
     Dates: start: 20011016
  2. LEVAXIN [Concomitant]
     Indication: HYPOTHYROIDISM
     Dosage: UNK
     Dates: start: 20010415
  3. ESTROGEN NOS [Concomitant]
     Indication: LUTEINIZING HORMONE DEFICIENCY
     Dosage: UNK
     Dates: start: 20010901
  4. ESTROGEN NOS [Concomitant]
     Indication: FOLLICLE-STIMULATING HORMONE DEFICIENCY
  5. ESTROGEN NOS [Concomitant]
     Indication: OVARIAN DISORDER
  6. ESTROGEN NOS [Concomitant]
     Indication: HYPOGONADISM
  7. FLUOXETINE HYDROCHLORIDE [Concomitant]
     Indication: ILL-DEFINED DISORDER
     Dosage: UNK
     Dates: start: 20011223

REACTIONS (1)
  - Pituitary tumour benign [Unknown]
